FAERS Safety Report 8861580 (Version 1)
Quarter: 2012Q4

REPORT INFORMATION
  Report Type: Spontaneous
  Country: US (occurrence: None)
  Receive Date: 20121025
  Receipt Date: 20121025
  Transmission Date: 20130627
  Serious: Yes (Life-Threatening, Hospitalization)
  Sender: FDA-Public Use
  Company Number: None

PATIENT
  Age: 79 None
  Sex: Male

DRUGS (1)
  1. WARFARIN [Suspect]
     Dosage: 4 MG/3 MG ALTERNAT

REACTIONS (2)
  - Gastrointestinal haemorrhage [None]
  - Decreased appetite [None]
